FAERS Safety Report 5162123-1 (Version None)
Quarter: 2006Q4

REPORT INFORMATION
  Report Type: 
  Country: None (occurrence: None)
  Receive Date: 20061121
  Receipt Date: 20061107
  Transmission Date: 20070319
  Serious: Yes (Hospitalization)
  Sender: FDA-Public Use
  Company Number: 2006001758

PATIENT
  Age: 57 Year
  Sex: Male

DRUGS (2)
  1. TARCEVA [Suspect]
     Dosage: 100 MG (QD), ORAL
     Route: 048
     Dates: start: 20060412, end: 20060627
  2. CHEMOTHERAPY [Concomitant]

REACTIONS (1)
  - DUODENAL PERFORATION [None]
